FAERS Safety Report 4583769-5 (Version None)
Quarter: 2005Q1

REPORT INFORMATION
  Report Type: 
  Country: None (occurrence: None)
  Receive Date: 20050216
  Receipt Date: 20050207
  Transmission Date: 20050727
  Serious: Yes (Death)
  Sender: FDA-Public Use
  Company Number: 200511296GDDC

PATIENT
  Age: 76 Year
  Sex: Male

DRUGS (7)
  1. METRONIDAZOLE [Suspect]
     Route: 042
  2. CIPRO [Suspect]
     Route: 042
  3. PRIMAXIN [Suspect]
     Route: 042
  4. DOPAMINE HCL [Concomitant]
  5. LEVOPHED [Concomitant]
  6. MORPHINE HYDROCHLORIDE [Concomitant]
  7. PEPCID [Concomitant]

REACTIONS (1)
  - HYPOTENSION [None]
